FAERS Safety Report 20471305 (Version 1)
Quarter: 2022Q1

REPORT INFORMATION
  Report Type: Spontaneous
  Country: US (occurrence: US)
  Receive Date: 20220214
  Receipt Date: 20220214
  Transmission Date: 20220423
  Serious: Yes (Hospitalization)
  Sender: FDA-Public Use
  Company Number: US-BAYER-2022P000095

PATIENT
  Age: 50 Year
  Sex: Male

DRUGS (14)
  1. ADEMPAS [Suspect]
     Active Substance: RIOCIGUAT
     Indication: Pulmonary arterial hypertension
     Dates: start: 20210506
  2. AMBRISENTAN [Concomitant]
     Active Substance: AMBRISENTAN
     Indication: Pulmonary hypertension
  3. ZOLPIDEM [Concomitant]
     Active Substance: ZOLPIDEM TARTRATE
  4. BUMETANIDE [Concomitant]
     Active Substance: BUMETANIDE
  5. HYDROXYZINE [Concomitant]
     Active Substance: HYDROXYZINE HYDROCHLORIDE
  6. METOLAZONE [Concomitant]
     Active Substance: METOLAZONE
  7. POTASSIUM CHLORIDE [Concomitant]
     Active Substance: POTASSIUM CHLORIDE
  8. MIDODRINE [Concomitant]
     Active Substance: MIDODRINE
  9. BISOPROLOL [Concomitant]
     Active Substance: BISOPROLOL
  10. FERROUS SULFATE [Concomitant]
     Active Substance: FERROUS SULFATE
  11. URSODIOL [Concomitant]
     Active Substance: URSODIOL
  12. VITAMIN D NOS [Concomitant]
     Active Substance: VITAMIN D NOS
  13. SPIRONOLACTONE [Concomitant]
     Active Substance: SPIRONOLACTONE
  14. CLEARLAX [Concomitant]
     Active Substance: POLYETHYLENE GLYCOL 3350

REACTIONS (7)
  - Lower gastrointestinal haemorrhage [None]
  - Iron deficiency anaemia [None]
  - Haemoglobin abnormal [None]
  - Acute kidney injury [None]
  - Cardiac failure acute [None]
  - Intestinal mass [None]
  - Metastatic neoplasm [None]
